FAERS Safety Report 9913332 (Version 1)
Quarter: 2014Q1

REPORT INFORMATION
  Report Type: Spontaneous
  Country: US (occurrence: US)
  Receive Date: 20140220
  Receipt Date: 20140220
  Transmission Date: 20141002
  Serious: No
  Sender: FDA-Public Use
  Company Number: US-009507513-1402USA008391

PATIENT
  Age: 25 Year
  Sex: Female
  Weight: 140.59 kg

DRUGS (1)
  1. IMPLANON [Suspect]
     Dosage: UNK
     Route: 059
     Dates: end: 20131219

REACTIONS (3)
  - Device difficult to use [Recovered/Resolved]
  - Device dislocation [Recovered/Resolved]
  - Scar [Unknown]
